FAERS Safety Report 20843530 (Version 2)
Quarter: 2022Q3

REPORT INFORMATION
  Report Type: Spontaneous
  Country: US (occurrence: US)
  Receive Date: 20220518
  Receipt Date: 20220719
  Transmission Date: 20221027
  Serious: No
  Sender: FDA-Public Use
  Company Number: US-BRISTOL-MYERS SQUIBB COMPANY-2022-040893

PATIENT
  Age: 83 Year
  Sex: Female
  Weight: 66.224 kg

DRUGS (2)
  1. REVLIMID [Suspect]
     Active Substance: LENALIDOMIDE
     Indication: Plasma cell myeloma
     Dosage: 21 DAY ON 7 DAYS OFF
     Route: 048
     Dates: start: 20211019
  2. REVLIMID [Suspect]
     Active Substance: LENALIDOMIDE
     Dosage: DAILY 21/7
     Route: 048
     Dates: start: 20210701

REACTIONS (2)
  - Diarrhoea [Unknown]
  - Faeces discoloured [Unknown]
